FAERS Safety Report 10161871 (Version 1)
Quarter: 2014Q2

REPORT INFORMATION
  Report Type: Spontaneous
  Country: DK (occurrence: DK)
  Receive Date: 20140509
  Receipt Date: 20140509
  Transmission Date: 20141212
  Serious: Yes (Hospitalization)
  Sender: FDA-Public Use
  Company Number: DK-JNJFOC-20140419296

PATIENT
  Age: 20 Year
  Sex: Female
  Weight: 80 kg

DRUGS (1)
  1. XEPLION [Suspect]
     Indication: SCHIZOPHRENIA, PARANOID TYPE
     Route: 030
     Dates: start: 20140127, end: 20140127

REACTIONS (5)
  - Hypersensitivity [Recovering/Resolving]
  - Dyspnoea [Recovered/Resolved]
  - Pruritus [Recovering/Resolving]
  - Peripheral swelling [Recovering/Resolving]
  - Malaise [Recovering/Resolving]
